FAERS Safety Report 5677424-8 (Version None)
Quarter: 2008Q1

REPORT INFORMATION
  Report Type: 
  Country: None (occurrence: None)
  Receive Date: 20080321
  Receipt Date: 20080321
  Transmission Date: 20080703
  Serious: Yes (Hospitalization, Other)
  Sender: FDA-Public Use
  Company Number: None

PATIENT
  Sex: Male
  Weight: 14.2 kg

DRUGS (6)
  1. VYVANSE [Suspect]
     Indication: ATTENTION DEFICIT/HYPERACTIVITY DISORDER
     Dosage: 30 MG DAILY PO
     Route: 048
     Dates: start: 20070901, end: 20080218
  2. PULMICORT [Concomitant]
  3. ALBUTEROL [Concomitant]
  4. SINGULAIR [Concomitant]
  5. CENTRUM JR. [Concomitant]
  6. CLONIDINE [Concomitant]

REACTIONS (3)
  - CONDITION AGGRAVATED [None]
  - LEFT VENTRICLE OUTFLOW TRACT OBSTRUCTION [None]
  - SINUS TACHYCARDIA [None]
